FAERS Safety Report 6609267-2 (Version None)
Quarter: 2010Q1

REPORT INFORMATION
  Report Type: 
  Country: None (occurrence: None)
  Receive Date: 20100224
  Receipt Date: 20100210
  Transmission Date: 20100710
  Serious: Yes (Other)
  Sender: FDA-Public Use
  Company Number: US-001532

PATIENT
  Sex: Female
  Weight: 43.9989 kg

DRUGS (6)
  1. SOMATROPIN                     0.6 ML [Suspect]
     Indication: HYPOPITUITARISM
     Dosage: (0.6 ML QD  SUBCUTANEOUS)
     Route: 058
     Dates: start: 20090621
  2. CORTEF /00028601/ [Concomitant]
  3. DDAVP [Concomitant]
  4. FLORINEF [Concomitant]
  5. NORVASC [Concomitant]
  6. SYNTHROID [Concomitant]

REACTIONS (2)
  - HYPERTENSION [None]
  - RENAL MASS [None]
